FAERS Safety Report 17092754 (Version 2)
Quarter: 2019Q4

REPORT INFORMATION
  Report Type: Spontaneous
  Country: FI (occurrence: FI)
  Receive Date: 20191129
  Receipt Date: 20191224
  Transmission Date: 20200122
  Serious: Yes (Other)
  Sender: FDA-Public Use
  Company Number: FI-ASTRAZENECA-2019SF68334

PATIENT
  Sex: Female

DRUGS (2)
  1. BRICANYL [Suspect]
     Active Substance: TERBUTALINE SULFATE
     Dosage: UNKNOWN DOSE
     Route: 055
  2. PULMICORT TURBUHALER [Suspect]
     Active Substance: BUDESONIDE
     Dosage: UNKNOWN DOSE
     Route: 055

REACTIONS (4)
  - Cough [Unknown]
  - Foreign body in respiratory tract [Unknown]
  - Device physical property issue [Unknown]
  - Suffocation feeling [Unknown]
